FAERS Safety Report 19441247 (Version 1)
Quarter: 2021Q2

REPORT INFORMATION
  Report Type: Spontaneous
  Country: US (occurrence: US)
  Receive Date: 20210621
  Receipt Date: 20210621
  Transmission Date: 20210717
  Serious: Yes (Other)
  Sender: FDA-Public Use
  Company Number: US-RECORDATI RARE DISEASE INC-2021002154

PATIENT
  Age: 34 Year
  Sex: Female

DRUGS (16)
  1. UNSPECIFIED DACTINOMYCIN [Suspect]
     Active Substance: DACTINOMYCIN
     Indication: METASTASES TO ADRENALS
     Dosage: UNK UNK, UNK
     Route: 042
  2. ETOPOSIDE. [Suspect]
     Active Substance: ETOPOSIDE
     Indication: GESTATIONAL TROPHOBLASTIC TUMOUR
     Dosage: 100 MILLIGRAM/SQ. METER, BIW
     Route: 042
  3. CISPLATIN. [Suspect]
     Active Substance: CISPLATIN
     Indication: METASTASES TO ADRENALS
     Dosage: 75 MILLIGRAM/SQ. METER, QD, DAY 1
     Route: 042
  4. CISPLATIN. [Suspect]
     Active Substance: CISPLATIN
     Indication: METASTASES TO LUNG
     Dosage: UNK UNK, UNK
     Route: 042
  5. UNSPECIFIED DACTINOMYCIN [Suspect]
     Active Substance: DACTINOMYCIN
     Indication: GESTATIONAL TROPHOBLASTIC TUMOUR
     Dosage: 0.5 MILLIGRAM, QD, DAY 8
     Route: 042
  6. METHOTREXATE. [Suspect]
     Active Substance: METHOTREXATE
     Indication: METASTASES TO LUNG
  7. METHOTREXATE. [Suspect]
     Active Substance: METHOTREXATE
     Indication: GESTATIONAL TROPHOBLASTIC TUMOUR
     Dosage: 300 MILLIGRAM/SQ. METER, QD, DAY 9
     Route: 042
  8. ETOPOSIDE. [Suspect]
     Active Substance: ETOPOSIDE
     Dosage: UNK UNK, UNK
     Route: 042
  9. CISPLATIN. [Suspect]
     Active Substance: CISPLATIN
     Indication: GESTATIONAL TROPHOBLASTIC TUMOUR
     Dosage: 20 MILLIGRAM/SQ. METER, BIW
     Route: 042
  10. METHOTREXATE. [Suspect]
     Active Substance: METHOTREXATE
     Indication: METASTASES TO ADRENALS
     Dosage: UNK UNK, UNK
     Route: 042
  11. PEMBROLIZUMAB. [Suspect]
     Active Substance: PEMBROLIZUMAB
     Indication: METASTASES TO LUNG
  12. PEMBROLIZUMAB. [Suspect]
     Active Substance: PEMBROLIZUMAB
     Indication: GESTATIONAL TROPHOBLASTIC TUMOUR
     Dosage: 200 MILLIGRAM, EVERY THREE WEEKS
     Route: 042
  13. PEMBROLIZUMAB. [Suspect]
     Active Substance: PEMBROLIZUMAB
     Indication: METASTASES TO ADRENALS
  14. UNSPECIFIED DACTINOMYCIN [Suspect]
     Active Substance: DACTINOMYCIN
     Indication: METASTASES TO LUNG
  15. ETOPOSIDE. [Suspect]
     Active Substance: ETOPOSIDE
     Indication: METASTASES TO LUNG
     Dosage: 100 MILLIGRAM/SQ. METER, QD, DAY 8
     Route: 042
  16. ETOPOSIDE. [Suspect]
     Active Substance: ETOPOSIDE
     Indication: METASTASES TO ADRENALS
     Dosage: 75 MILLIGRAM/SQ. METER, QD. DAY 1
     Route: 042

REACTIONS (4)
  - Ototoxicity [Unknown]
  - Thrombocytopenia [Unknown]
  - Pulmonary arteriovenous fistula [Unknown]
  - Tinnitus [Unknown]
